FAERS Safety Report 8032149-9 (Version None)
Quarter: 2012Q1

REPORT INFORMATION
  Report Type: 
  Country: None (occurrence: None)
  Receive Date: 20120109
  Receipt Date: 20120103
  Transmission Date: 20120608
  Serious: Yes (Other)
  Sender: FDA-Public Use
  Company Number: US-GILEAD-2011-0044238

PATIENT
  Sex: Female

DRUGS (6)
  1. TRUVADA [Suspect]
     Dosage: 1 DF, ONCE
     Route: 048
     Dates: start: 20110501, end: 20110501
  2. PREZISTA [Concomitant]
     Indication: HIV INFECTION
     Dosage: 800 MG, ONCE
     Route: 048
  3. NORVIR [Suspect]
     Dosage: 100 MG, ONCE
     Route: 048
     Dates: start: 20110501, end: 20110501
  4. REYATAZ [Concomitant]
     Indication: HIV INFECTION
     Dosage: 300 MG, ONCE
     Route: 048
  5. NORVIR [Suspect]
     Indication: HIV INFECTION
     Dosage: 100 MG, ONCE
     Route: 048
     Dates: start: 20100701, end: 20100701
  6. TRUVADA [Suspect]
     Indication: HIV INFECTION
     Dosage: 1 DF, ONCE
     Route: 048
     Dates: start: 20100701, end: 20100701

REACTIONS (3)
  - VULVOVAGINAL BURNING SENSATION [None]
  - VAGINAL OEDEMA [None]
  - UTERINE CANCER [None]
